FAERS Safety Report 6830688-7 (Version None)
Quarter: 2010Q3

REPORT INFORMATION
  Report Type: 
  Country: None (occurrence: None)
  Receive Date: 20100712
  Receipt Date: 20100630
  Transmission Date: 20110219
  Serious: Yes (Other)
  Sender: FDA-Public Use
  Company Number: US-BAYER-201026923NA

PATIENT
  Age: 22 Year
  Sex: Female
  Weight: 59 kg

DRUGS (1)
  1. MIRENA [Suspect]
     Indication: CONTRACEPTION
     Dosage: FREQUENCY: CONTINUOUS
     Route: 015
     Dates: start: 20080929, end: 20091231

REACTIONS (9)
  - ABDOMINAL TENDERNESS [None]
  - AMENORRHOEA [None]
  - DEVICE DISLOCATION [None]
  - DYSPAREUNIA [None]
  - HAEMORRHAGE [None]
  - OVARIAN CYST [None]
  - PELVIC PAIN [None]
  - UTERINE PERFORATION [None]
  - VAGINAL HAEMORRHAGE [None]
